FAERS Safety Report 4321001-8 (Version None)
Quarter: 2004Q1

REPORT INFORMATION
  Report Type: 
  Country: None (occurrence: None)
  Receive Date: 20040315
  Receipt Date: 20031219
  Transmission Date: 20041129
  Serious: Yes (Other)
  Sender: FDA-Public Use
  Company Number: PHEH2003US11601

PATIENT
  Age: 57 Year
  Sex: Female

DRUGS (5)
  1. TRILEPTAL [Suspect]
     Indication: PAIN
     Dosage: 300 MG, QD
     Dates: start: 20031010, end: 20031101
  2. DURAGESIC [Concomitant]
  3. NEURONTIN [Concomitant]
  4. ATENOLOL [Concomitant]
  5. AMBIEN [Concomitant]

REACTIONS (3)
  - FLUID RETENTION [None]
  - HYPONATRAEMIA [None]
  - NAUSEA [None]
